FAERS Safety Report 8446939-1 (Version None)
Quarter: 2012Q2

REPORT INFORMATION
  Report Type: 
  Country: None (occurrence: None)
  Receive Date: 20120619
  Receipt Date: 20120608
  Transmission Date: 20120825
  Serious: Yes (Death)
  Sender: FDA-Public Use
  Company Number: GB-ACCORD-013736

PATIENT
  Age: 42 Year
  Sex: Female

DRUGS (2)
  1. PACLITAXEL [Suspect]
  2. AVASTIN [Suspect]

REACTIONS (1)
  - PULMONARY EMBOLISM [None]
